FAERS Safety Report 16154376 (Version 2)
Quarter: 2019Q2

REPORT INFORMATION
  Report Type: Spontaneous
  Country: US (occurrence: US)
  Receive Date: 20190403
  Receipt Date: 20190404
  Transmission Date: 20190711
  Serious: Yes (Death)
  Sender: FDA-Public Use
  Company Number: US-ROCHE-2296623

PATIENT
  Age: 71 Year
  Sex: Female

DRUGS (16)
  1. ESBRIET [Suspect]
     Active Substance: PIRFENIDONE
     Indication: IDIOPATHIC PULMONARY FIBROSIS
     Route: 048
     Dates: start: 20160622
  2. BISOPROLOL FUMARATE. [Concomitant]
     Active Substance: BISOPROLOL FUMARATE
  3. POTASSIUM BICARBONATE. [Concomitant]
     Active Substance: POTASSIUM BICARBONATE
  4. PROAIR HFA [Concomitant]
     Active Substance: ALBUTEROL SULFATE
  5. BUMETANIDE. [Concomitant]
     Active Substance: BUMETANIDE
  6. PROTONIX (OMEPRAZOLE) [Concomitant]
     Active Substance: OMEPRAZOLE
  7. TIZANIDINE. [Concomitant]
     Active Substance: TIZANIDINE
  8. LISINOPRIL. [Concomitant]
     Active Substance: LISINOPRIL
  9. NOVOLIN [Concomitant]
     Active Substance: INSULIN HUMAN
  10. SIMVASTATIN. [Concomitant]
     Active Substance: SIMVASTATIN
  11. PANTOPRAZOLE SODIUM. [Concomitant]
     Active Substance: PANTOPRAZOLE SODIUM
  12. GABAPENTIN. [Concomitant]
     Active Substance: GABAPENTIN
  13. OXYCODONE [Concomitant]
     Active Substance: OXYCODONE
  14. ASPIRIN. [Concomitant]
     Active Substance: ASPIRIN
  15. FLUTICASONE PROPIONATE. [Concomitant]
     Active Substance: FLUTICASONE PROPIONATE
  16. XARELTO [Concomitant]
     Active Substance: RIVAROXABAN

REACTIONS (1)
  - Death [Fatal]

NARRATIVE: CASE EVENT DATE: 20190308
